FAERS Safety Report 5823860-6 (Version None)
Quarter: 2008Q3

REPORT INFORMATION
  Report Type: 
  Country: None (occurrence: None)
  Receive Date: 20080725
  Receipt Date: 20080714
  Transmission Date: 20090109
  Serious: Yes (Other)
  Sender: FDA-Public Use
  Company Number: US-PFIZER INC-2008060572

PATIENT
  Sex: Female
  Weight: 79.5 kg

DRUGS (10)
  1. CHANTIX [Suspect]
     Indication: SMOKING CESSATION THERAPY
     Route: 048
     Dates: start: 20080614, end: 20080626
  2. OXYCONTIN [Concomitant]
  3. PAXIL [Concomitant]
  4. ACETYLSALICYLIC ACID SRT [Concomitant]
  5. XANAX [Concomitant]
  6. OXYCODONE HCL [Concomitant]
  7. AMBIEN [Concomitant]
  8. LASIX [Concomitant]
  9. POTASSIUM CHLORIDE [Concomitant]
  10. CYMBALTA [Concomitant]

REACTIONS (8)
  - BACK PAIN [None]
  - CRYING [None]
  - DYSSTASIA [None]
  - MALAISE [None]
  - NAUSEA [None]
  - PAIN [None]
  - PAROSMIA [None]
  - RENAL PAIN [None]
